FAERS Safety Report 18117231 (Version 1)
Quarter: 2020Q3

REPORT INFORMATION
  Report Type: Spontaneous
  Country: GB (occurrence: GB)
  Receive Date: 20200806
  Receipt Date: 20200806
  Transmission Date: 20201103
  Serious: Yes (Other)
  Sender: FDA-Public Use
  Company Number: GB-009507513-2008GBR000677

PATIENT
  Age: 29 Year
  Sex: Male

DRUGS (2)
  1. ABACAVIR SULFATE (+) LAMIVUDINE [Concomitant]
     Active Substance: ABACAVIR SULFATE\LAMIVUDINE
     Dosage: STRENGTH: 600/300 (UNIT NOT PROVIDED); DOSE OD
  2. ISENTRESS [Suspect]
     Active Substance: RALTEGRAVIR POTASSIUM
     Dosage: DOSE: BD
     Route: 048

REACTIONS (6)
  - Body temperature abnormal [Unknown]
  - Dyspnoea [Unknown]
  - Coronavirus infection [Unknown]
  - Cough [Unknown]
  - Lower respiratory tract infection [Unknown]
  - SARS-CoV-2 antibody test positive [Unknown]

NARRATIVE: CASE EVENT DATE: 2020
